FAERS Safety Report 18373042 (Version 1)
Quarter: 2020Q4

REPORT INFORMATION
  Report Type: Spontaneous
  Country: US (occurrence: US)
  Receive Date: 20201012
  Receipt Date: 20201012
  Transmission Date: 20210114
  Serious: No
  Sender: FDA-Public Use
  Company Number: US-BAYER-2020-216615

PATIENT

DRUGS (7)
  1. SINGULAIR [Concomitant]
     Active Substance: MONTELUKAST SODIUM
  2. CLARITIN [Suspect]
     Active Substance: LORATADINE
     Indication: FLUID RETENTION
  3. FAMOTIDINE. [Concomitant]
     Active Substance: FAMOTIDINE
  4. QUERCETIN [Concomitant]
     Active Substance: QUERCETIN
  5. CLARITIN [Suspect]
     Active Substance: LORATADINE
     Indication: BLOOD PRESSURE ABNORMAL
     Route: 065
  6. ZOFRAN [Concomitant]
     Active Substance: ONDANSETRON HYDROCHLORIDE
  7. CLARITIN [Suspect]
     Active Substance: LORATADINE
     Indication: MENTAL IMPAIRMENT

REACTIONS (1)
  - Drug effective for unapproved indication [Unknown]
